FAERS Safety Report 11587462 (Version 2)
Quarter: 2015Q4

REPORT INFORMATION
  Report Type: Report from Study
  Country: CO (occurrence: CO)
  Receive Date: 20151001
  Receipt Date: 20151005
  Transmission Date: 20160304
  Serious: Yes (Death)
  Sender: FDA-Public Use
  Company Number: PHHY2015CO117974

PATIENT
  Sex: Female

DRUGS (1)
  1. SIGNIFOR [Suspect]
     Active Substance: PASIREOTIDE
     Indication: PITUITARY-DEPENDENT CUSHING^S SYNDROME
     Dosage: 0.6 MG, BID
     Route: 058
     Dates: start: 20150717

REACTIONS (2)
  - Pituitary-dependent Cushing^s syndrome [Fatal]
  - Coma [Fatal]
